FAERS Safety Report 9343833 (Version 5)
Quarter: 2013Q4

REPORT INFORMATION
  Report Type: Spontaneous
  Country: US (occurrence: US)
  Receive Date: 20130612
  Receipt Date: 20131115
  Transmission Date: 20140711
  Serious: Yes (Other)
  Sender: FDA-Public Use
  Company Number: US-009507513-1306USA005049

PATIENT
  Sex: Female

DRUGS (9)
  1. VICTRELIS [Suspect]
     Indication: HEPATITIS C
     Dosage: 800 MG, TID
     Route: 048
     Dates: start: 20130626, end: 20130927
  2. REBETOL [Suspect]
     Indication: HEPATITIS C
     Dosage: 3 CAPSULES AM AND PM, QD, LATER 2 CAPSULES AM AND 1 PM, QD
     Route: 048
     Dates: start: 20130529, end: 20130927
  3. PEGASYS [Suspect]
     Indication: HEPATITIS C
     Dosage: UNK
     Dates: start: 20130529, end: 20130927
  4. ZOLOFT [Concomitant]
  5. LAMICTAL [Concomitant]
  6. PRILOSEC [Concomitant]
  7. LEVOTHYROXINE SODIUM [Concomitant]
  8. LUTERA [Concomitant]
  9. TRIAMTERENE [Concomitant]

REACTIONS (31)
  - Thyroid function test abnormal [Unknown]
  - Fall [Unknown]
  - Excoriation [Unknown]
  - Pain in extremity [Unknown]
  - Injection site discolouration [Unknown]
  - Weight increased [Unknown]
  - Hypoaesthesia [Unknown]
  - Photosensitivity reaction [Unknown]
  - Gout [Unknown]
  - Abdominal distension [Unknown]
  - Pruritus [Unknown]
  - Dyspnoea [Unknown]
  - Headache [Unknown]
  - Rash [Unknown]
  - Fatigue [Unknown]
  - Nausea [Unknown]
  - Insomnia [Unknown]
  - Vomiting [Unknown]
  - Anaemia [Unknown]
  - Nausea [Unknown]
  - Haemoglobin decreased [Unknown]
  - Fatigue [Unknown]
  - Dizziness [Unknown]
  - Asthenia [Unknown]
  - Insomnia [Unknown]
  - Pruritus [Unknown]
  - Hepatitis C [Unknown]
  - Anaemia [Unknown]
  - Haemoglobin decreased [Unknown]
  - Fatigue [Unknown]
  - Drug ineffective [Unknown]
